FAERS Safety Report 15952934 (Version 1)
Quarter: 2019Q1

REPORT INFORMATION
  Report Type: Spontaneous
  Country: FR (occurrence: FR)
  Receive Date: 20190211
  Receipt Date: 20190211
  Transmission Date: 20190417
  Serious: Yes (Hospitalization)
  Sender: FDA-Public Use
  Company Number: PHHY2019FR027803

PATIENT
  Age: 64 Year
  Sex: Male

DRUGS (3)
  1. ZOPHREN [Suspect]
     Active Substance: ONDANSETRON
     Indication: VOMITING
     Dosage: 16 MG, QD
     Route: 042
     Dates: start: 20181231, end: 20190106
  2. CYTARABINE. [Suspect]
     Active Substance: CYTARABINE
     Indication: ACUTE LEUKAEMIA
     Dosage: 370 MG, QD
     Route: 042
     Dates: start: 20181231, end: 20190106
  3. IDARUBICIN [Suspect]
     Active Substance: IDARUBICIN
     Indication: ACUTE LEUKAEMIA
     Dosage: 22.3 MG, QD
     Route: 042
     Dates: start: 20181231, end: 20190102

REACTIONS (1)
  - Acute leukaemia [Recovering/Resolving]

NARRATIVE: CASE EVENT DATE: 20190117
